FAERS Safety Report 19625253 (Version 2)
Quarter: 2021Q3

REPORT INFORMATION
  Report Type: Report from Study
  Country: US (occurrence: US)
  Receive Date: 20210729
  Receipt Date: 20210924
  Transmission Date: 20211014
  Serious: No
  Sender: FDA-Public Use
  Company Number: NVSC2021US157975

PATIENT
  Age: 53 Year
  Sex: Female

DRUGS (2)
  1. KESIMPTA [Suspect]
     Active Substance: OFATUMUMAB
     Dosage: UNK
     Route: 065
     Dates: start: 20210922
  2. KESIMPTA [Suspect]
     Active Substance: OFATUMUMAB
     Indication: MULTIPLE SCLEROSIS
     Dosage: 20 MG
     Route: 065
     Dates: start: 20210711

REACTIONS (3)
  - Asthenia [Unknown]
  - Migraine [Unknown]
  - Fatigue [Unknown]

NARRATIVE: CASE EVENT DATE: 20210922
